FAERS Safety Report 6010610-6 (Version None)
Quarter: 2008Q4

REPORT INFORMATION
  Report Type: 
  Country: None (occurrence: None)
  Receive Date: 20081218
  Receipt Date: 20080602
  Transmission Date: 20090506
  Serious: Yes (Other)
  Sender: FDA-Public Use
  Company Number: US-AMGEN-QUU272180

PATIENT
  Sex: Female
  Weight: 86.3 kg

DRUGS (8)
  1. ENBREL [Suspect]
     Indication: RHEUMATOID ARTHRITIS
     Route: 058
     Dates: start: 19990101
  2. PRINIVIL [Concomitant]
     Route: 048
  3. TYLENOL (CAPLET) [Concomitant]
     Route: 048
  4. ARAVA [Concomitant]
     Route: 048
     Dates: start: 20051201
  5. HYDROCHLOROTHIAZIDE [Concomitant]
     Route: 048
  6. VESICARE [Concomitant]
     Route: 048
  7. TYLENOL W/ CODEINE [Concomitant]
     Route: 048
  8. COENZYME Q10 [Concomitant]
     Route: 048

REACTIONS (30)
  - ACOUSTIC NEUROMA [None]
  - ADRENAL MASS [None]
  - APPENDICECTOMY [None]
  - ARTHRALGIA [None]
  - BENIGN OVARIAN TUMOUR [None]
  - BIOPSY BREAST [None]
  - BLADDER TRANSITIONAL CELL CARCINOMA [None]
  - BLISTER [None]
  - CHEST PAIN [None]
  - COLITIS [None]
  - DIVERTICULUM [None]
  - DIZZINESS [None]
  - GASTROOESOPHAGEAL REFLUX DISEASE [None]
  - HIATUS HERNIA [None]
  - HYPERLIPIDAEMIA [None]
  - HYPERTENSION [None]
  - HYSTEROSALPINGO-OOPHORECTOMY [None]
  - INTERVERTEBRAL DISC OPERATION [None]
  - MACULAR DEGENERATION [None]
  - MIGRAINE [None]
  - MUSCULOSKELETAL STIFFNESS [None]
  - OSTEOPENIA [None]
  - PEPTIC ULCER [None]
  - PNEUMONIA [None]
  - RASH [None]
  - RHEUMATOID ARTHRITIS [None]
  - SINUSITIS [None]
  - TONSILLECTOMY [None]
  - URINARY TRACT INFECTION [None]
  - UTERINE DILATION AND CURETTAGE [None]
